FAERS Safety Report 5965582-7 (Version None)
Quarter: 2008Q4

REPORT INFORMATION
  Report Type: 
  Country: None (occurrence: None)
  Receive Date: 20081125
  Receipt Date: 20081118
  Transmission Date: 20090506
  Serious: Yes (Other)
  Sender: FDA-Public Use
  Company Number: GR-BRISTOL-MYERS SQUIBB COMPANY-14418313

PATIENT
  Age: 52 Year
  Sex: Male

DRUGS (4)
  1. LYSODREN [Suspect]
     Indication: RECURRENT CANCER
     Dosage: ON 25SEP08 DAILY DOSE WAS 7G/D. STOPPED ON 27SEP08 AND DRUG REINTRODUCED ON 06OCT08 AT 4G/D
  2. LYSODREN [Suspect]
     Indication: ADRENAL CARCINOMA
     Dosage: ON 25SEP08 DAILY DOSE WAS 7G/D. STOPPED ON 27SEP08 AND DRUG REINTRODUCED ON 06OCT08 AT 4G/D
  3. HYDROCORTISONE [Concomitant]
     Indication: ADRENAL INSUFFICIENCY
  4. FLUDROCORTISONE ACETATE [Concomitant]

REACTIONS (6)
  - ANOREXIA [None]
  - DRUG LEVEL ABOVE THERAPEUTIC [None]
  - DYSARTHRIA [None]
  - FATIGUE [None]
  - LETHARGY [None]
  - MEMORY IMPAIRMENT [None]
